FAERS Safety Report 4665476-3 (Version None)
Quarter: 2005Q2

REPORT INFORMATION
  Report Type: 
  Country: None (occurrence: None)
  Receive Date: 20050519
  Receipt Date: 20040526
  Transmission Date: 20051028
  Serious: Yes (Other)
  Sender: FDA-Public Use
  Company Number: US-BRISTOL-MYERS SQUIBB COMPANY-12598223

PATIENT
  Age: 41 Year
  Sex: Male

DRUGS (1)
  1. CYTOXAN [Suspect]
     Indication: VASCULITIS
     Route: 048

REACTIONS (1)
  - CYSTITIS HAEMORRHAGIC [None]
